FAERS Safety Report 8950579 (Version 1)
Quarter: 2012Q4

REPORT INFORMATION
  Report Type: Spontaneous
  Country: GB (occurrence: None)
  Receive Date: 20121128
  Receipt Date: 20121128
  Transmission Date: 20130627
  Serious: Yes (Life-Threatening, Hospitalization)
  Sender: FDA-Public Use
  Company Number: AUR-APL-2012-04914

PATIENT
  Age: 78 Year
  Sex: Female
  Weight: 87.1 kg

DRUGS (1)
  1. RISPERIDONE (RISPERIDONE) [Suspect]
     Dosage: (1 mg,2 in 1 D)
     Route: 048
     Dates: start: 20121021, end: 20121101

REACTIONS (3)
  - Atrial tachycardia [None]
  - Supraventricular tachycardia [None]
  - Apparent life threatening event [None]
